FAERS Safety Report 13561484 (Version 1)
Quarter: 2017Q2

REPORT INFORMATION
  Report Type: Spontaneous
  Country: US (occurrence: US)
  Receive Date: 20170518
  Receipt Date: 20170518
  Transmission Date: 20170830
  Serious: No
  Sender: FDA-Public Use
  Company Number: US-APOTEX-2016AP009366

PATIENT
  Age: 81 Year
  Sex: Female

DRUGS (3)
  1. IMIQUIMOD. [Suspect]
     Active Substance: IMIQUIMOD
     Dosage: TAPERED TO ONCE WEEKLY
     Route: 061
  2. ACITRETIN. [Concomitant]
     Active Substance: ACITRETIN
     Indication: METASTASES TO LUNG
     Dosage: 10 MG, DAILY
     Route: 048
  3. IMIQUIMOD. [Suspect]
     Active Substance: IMIQUIMOD
     Indication: SQUAMOUS CELL CARCINOMA OF THE ORAL CAVITY
     Dosage: APPLIED ONCE DAILY
     Route: 061

REACTIONS (2)
  - Tenderness [Unknown]
  - Off label use [Unknown]
